FAERS Safety Report 5078312-0 (Version None)
Quarter: 2006Q3

REPORT INFORMATION
  Report Type: 
  Country: None (occurrence: None)
  Receive Date: 20060720
  Receipt Date: 20060608
  Transmission Date: 20061208
  Serious: Yes (Other)
  Sender: FDA-Public Use
  Company Number: HQWYE207213JUN06

PATIENT
  Age: 86 Year
  Sex: Female
  Weight: 68.1 kg

DRUGS (7)
  1. ADVIL PM [Suspect]
     Indication: PAIN
     Dosage: 2 TABLET 1X PER 1 DAY, ORAL
     Route: 048
     Dates: start: 20060606, end: 20060606
  2. ADVAIR DISKUS 100/50 [Concomitant]
  3. DILTIAZEM [Concomitant]
  4. ASPIRIN [Concomitant]
  5. CENTRUM (MULTIVITAMIN/MULTIMINERAL) [Concomitant]
  6. LEVOTHROID [Concomitant]
  7. OXYGEN (OXYGEN) [Concomitant]

REACTIONS (2)
  - HEADACHE [None]
  - NAUSEA [None]
